FAERS Safety Report 9985870 (Version 1)
Quarter: 2014Q1

REPORT INFORMATION
  Report Type: Spontaneous
  Country: GB (occurrence: GB)
  Receive Date: 20140307
  Receipt Date: 20140307
  Transmission Date: 20141002
  Serious: Yes (Disabling)
  Sender: FDA-Public Use
  Company Number: GB-WATSON-2014-03745

PATIENT
  Age: 51 Year
  Sex: Female
  Weight: 50 kg

DRUGS (4)
  1. METOCLOPRAMIDE (UNKNOWN) [Suspect]
     Indication: NAUSEA
     Dosage: 10 MG, UNKNOWN
     Route: 048
     Dates: start: 20130820, end: 20140202
  2. OMEPRAZOLE [Concomitant]
     Indication: PRODUCT USED FOR UNKNOWN INDICATION
     Dosage: 20 MG UNK, CONTINUING
     Route: 048
     Dates: start: 20140106
  3. NITROFURANTOIN [Concomitant]
     Indication: URINARY TRACT INFECTION
     Dosage: 50 MG, UNKNOWN
     Route: 048
     Dates: start: 20140106, end: 20140109
  4. PROCHLORPERAZINE [Concomitant]
     Indication: NAUSEA
     Dosage: 3 MG, UNKNOWN
     Route: 002
     Dates: start: 20140106, end: 20140131

REACTIONS (2)
  - Tremor [Not Recovered/Not Resolved]
  - Trismus [Not Recovered/Not Resolved]
